FAERS Safety Report 6574939-5 (Version None)
Quarter: 2010Q1

REPORT INFORMATION
  Report Type: 
  Country: None (occurrence: None)
  Receive Date: 20100209
  Receipt Date: 20100201
  Transmission Date: 20100710
  Serious: Yes (Hospitalization, Other)
  Sender: FDA-Public Use
  Company Number: PHHY2009IE49405

PATIENT
  Sex: Male

DRUGS (8)
  1. CLOZARIL [Suspect]
     Indication: SCHIZOPHRENIA
     Dosage: UNK
     Dates: start: 20031121
  2. CLOZARIL [Suspect]
     Dosage: UNK
     Dates: start: 20091110
  3. ATENOLOL [Concomitant]
     Dosage: 12.5 MG, UNK
     Route: 048
  4. VALPROATE SODIUM [Concomitant]
     Dosage: 1200 MG,DAILY
     Route: 048
  5. VENLAFAXINE [Concomitant]
     Dosage: 225 MG, DAILY
     Route: 048
  6. PROCYCLIDINE HYDROCHLORIDE 2MG TAB [Concomitant]
     Dosage: 2.5 MG, DAILY
  7. LORAZEPAM [Concomitant]
     Dosage: 0.5 MG,DAILY
  8. HALOPERIDOL [Concomitant]
     Dosage: 15 MG, DAILY

REACTIONS (3)
  - PLATELET COUNT DECREASED [None]
  - PSYCHOTIC DISORDER [None]
  - RESPIRATORY TRACT INFECTION [None]
